FAERS Safety Report 13576219 (Version 1)
Quarter: 2017Q2

REPORT INFORMATION
  Report Type: Report from Study
  Country: IT (occurrence: IT)
  Receive Date: 20170524
  Receipt Date: 20170524
  Transmission Date: 20170830
  Serious: Yes (Hospitalization)
  Sender: FDA-Public Use
  Company Number: IT-ACCORD-051658

PATIENT
  Age: 32 Year
  Sex: Female

DRUGS (4)
  1. QUETIAPINE. [Suspect]
     Active Substance: QUETIAPINE
     Route: 048
  2. FLUOXETINE [Suspect]
     Active Substance: FLUOXETINE HYDROCHLORIDE
     Route: 048
  3. DIAZEPAM ABC FARMACEUTICI S.P.A. [Suspect]
     Active Substance: DIAZEPAM
     Dosage: STRENGTH: 5 MG/ML
     Route: 048
  4. LAMOTRIGINE. [Suspect]
     Active Substance: LAMOTRIGINE
     Route: 048

REACTIONS (2)
  - Loss of consciousness [Recovered/Resolved]
  - Drug use disorder [Unknown]

NARRATIVE: CASE EVENT DATE: 20170427
